FAERS Safety Report 8137930-3 (Version None)
Quarter: 2012Q1

REPORT INFORMATION
  Report Type: 
  Country: None (occurrence: None)
  Receive Date: 20120215
  Receipt Date: 20120206
  Transmission Date: 20120608
  Serious: Yes (Other)
  Sender: FDA-Public Use
  Company Number: US-BAYER-2011-117871

PATIENT
  Age: 55 Year
  Sex: Female
  Weight: 145 kg

DRUGS (9)
  1. METOPROLOL TARTRATE [Concomitant]
     Route: 048
  2. XARELTO [Suspect]
     Dosage: 20 MG, QD
     Route: 048
     Dates: start: 20111121, end: 20111125
  3. FLECAINIDE [Suspect]
     Indication: ATRIAL FIBRILLATION
     Dosage: 150 MG, BID
     Dates: start: 20111125, end: 20111130
  4. TORSEMIDE [Concomitant]
     Route: 048
  5. BETAPACE [Suspect]
     Indication: ATRIAL FIBRILLATION
     Dates: start: 20111111, end: 20111125
  6. POTASSIUM CHLORIDE [Concomitant]
     Dosage: 20 MEQ, BID
     Dates: start: 20111121
  7. IBUPROFEN [Concomitant]
     Route: 048
  8. ACETYLSALICYLIC ACID SRT [Concomitant]
     Route: 048
  9. PEPCID AC [Concomitant]

REACTIONS (1)
  - ANGIOEDEMA [None]
